FAERS Safety Report 5289571-3 (Version None)
Quarter: 2007Q2

REPORT INFORMATION
  Report Type: 
  Country: None (occurrence: None)
  Receive Date: 20070406
  Receipt Date: 20070329
  Transmission Date: 20071010
  Serious: Yes (Other)
  Sender: FDA-Public Use
  Company Number: US-ROCHE-490381

PATIENT
  Age: 54 Year
  Sex: Female
  Weight: 131.5 kg

DRUGS (2)
  1. BONIVA [Suspect]
     Indication: OSTEOPOROSIS
     Route: 048
     Dates: start: 20050315, end: 20070317
  2. UNSPECIFIED MEDICATIONS [Concomitant]

REACTIONS (3)
  - DENTAL CARIES [None]
  - JAW DISORDER [None]
  - PAIN IN JAW [None]
